FAERS Safety Report 16083137 (Version 1)
Quarter: 2019Q1

REPORT INFORMATION
  Report Type: Report from Study
  Country: JP (occurrence: JP)
  Receive Date: 20190318
  Receipt Date: 20190318
  Transmission Date: 20190418
  Serious: Yes (Hospitalization)
  Sender: FDA-Public Use
  Company Number: PHJP2019JP000856

PATIENT
  Age: 74 Year
  Sex: Male

DRUGS (6)
  1. ZYKADIA [Suspect]
     Active Substance: CERITINIB
     Dosage: 450 MG, QD
     Route: 048
     Dates: start: 20170216, end: 20170224
  2. ZYKADIA [Suspect]
     Active Substance: CERITINIB
     Dosage: 600 MG, QD
     Route: 048
     Dates: start: 20170209, end: 20170215
  3. ZYKADIA [Suspect]
     Active Substance: CERITINIB
     Indication: NON-SMALL CELL LUNG CANCER STAGE IV
     Dosage: 750 MG, QD
     Route: 048
     Dates: start: 20170112, end: 20170208
  4. ZYKADIA [Suspect]
     Active Substance: CERITINIB
     Dosage: 150 MG, QD
     Route: 048
     Dates: start: 20170522, end: 20170629
  5. ZYKADIA [Suspect]
     Active Substance: CERITINIB
     Dosage: 150 MG, QD
     Route: 048
     Dates: start: 20170227, end: 20170306
  6. ZYKADIA [Suspect]
     Active Substance: CERITINIB
     Dosage: 300 MG, QD
     Route: 048
     Dates: start: 20170307, end: 20170521

REACTIONS (3)
  - Cholecystitis [Recovered/Resolved]
  - Rash [Recovered/Resolved]
  - Diarrhoea [Recovering/Resolving]

NARRATIVE: CASE EVENT DATE: 20170114
